FAERS Safety Report 7122965-X (Version None)
Quarter: 2010Q4

REPORT INFORMATION
  Report Type: 
  Country: None (occurrence: None)
  Receive Date: 20101124
  Receipt Date: 20101119
  Transmission Date: 20110411
  Serious: Yes (Death)
  Sender: FDA-Public Use
  Company Number: US-GILEAD-2010-0033053

PATIENT
  Sex: Male

DRUGS (18)
  1. LETAIRIS [Suspect]
     Indication: PULMONARY ARTERIAL HYPERTENSION
     Route: 048
     Dates: start: 20090430, end: 20100813
  2. REMODULIN [Concomitant]
  3. ADCIRCA [Concomitant]
  4. OXYGEN [Concomitant]
  5. WARFARIN SODIUM [Concomitant]
  6. ASPIRIN [Concomitant]
  7. FUROSEMIDE [Concomitant]
  8. SPIRONOLACTONE [Concomitant]
  9. COMBIVENT [Concomitant]
  10. NIACIN [Concomitant]
  11. PRILOSEC [Concomitant]
  12. ACETAMINOPHEN AND HYDROCODONE BITARTRATE [Concomitant]
  13. PROMETHAZINE [Concomitant]
  14. MUCINEX [Concomitant]
  15. ZANTAC [Concomitant]
  16. DIGOXIN [Concomitant]
  17. FENTANYL [Concomitant]
  18. GABAPENTIN [Concomitant]

REACTIONS (2)
  - COR PULMONALE [None]
  - MYOCARDIAL INFARCTION [None]
